FAERS Safety Report 16479277 (Version 1)
Quarter: 2019Q2

REPORT INFORMATION
  Report Type: Spontaneous
  Country: US (occurrence: US)
  Receive Date: 20190626
  Receipt Date: 20190626
  Transmission Date: 20190711
  Serious: Yes (Hospitalization, Other)
  Sender: FDA-Public Use
  Company Number: US-SAOL THERAPEUTICS-2019SAO00141

PATIENT
  Age: 18 Year
  Sex: Female
  Weight: 100.5 kg

DRUGS (29)
  1. LIORESAL [Suspect]
     Active Substance: BACLOFEN
     Dosage: 150.10 ?G, \DAY(40% DEREASE FROM INITIAL DOSE OF 249.76 ?G/DAY)
     Dates: start: 20190412
  2. BENADRYL ALLERGY [Concomitant]
     Active Substance: DIPHENHYDRAMINE HYDROCHLORIDE
  3. FLONASE [Concomitant]
     Active Substance: FLUTICASONE PROPIONATE
  4. MILK OF MAGNESIA [Concomitant]
     Active Substance: MAGNESIUM HYDROXIDE
  5. LACTULOSE. [Concomitant]
     Active Substance: LACTULOSE
  6. GABAPENTIN. [Concomitant]
     Active Substance: GABAPENTIN
  7. LIORESAL [Suspect]
     Active Substance: BACLOFEN
     Indication: MUSCLE SPASTICITY
     Dosage: 250 ?G, \DAY
     Route: 037
     Dates: end: 20190412
  8. CALCIUM/VITAMIN D [Concomitant]
     Active Substance: CALCIUM\VITAMIN D
  9. FIBER POWDER [Concomitant]
  10. CYCLOBENZAPRINE. [Concomitant]
     Active Substance: CYCLOBENZAPRINE
  11. SINGULAIR [Concomitant]
     Active Substance: MONTELUKAST SODIUM
  12. TIZANIDINE. [Concomitant]
     Active Substance: TIZANIDINE
  13. EFFEXOR [Concomitant]
     Active Substance: VENLAFAXINE HYDROCHLORIDE
  14. TRAZODONE [Concomitant]
     Active Substance: TRAZODONE HYDROCHLORIDE
  15. ENEMEEZ [Concomitant]
     Active Substance: DOCUSATE SODIUM
  16. ALBUTEROL. [Concomitant]
     Active Substance: ALBUTEROL
  17. IBUPROFEN. [Concomitant]
     Active Substance: IBUPROFEN
  18. CEPHALEXIN. [Concomitant]
     Active Substance: CEPHALEXIN
  19. ATIVAN [Concomitant]
     Active Substance: LORAZEPAM
  20. HIPREX [Concomitant]
     Active Substance: METHENAMINE HIPPURATE
  21. MIRALAX [Concomitant]
     Active Substance: POLYETHYLENE GLYCOL 3350
  22. MUPIROCIN. [Concomitant]
     Active Substance: MUPIROCIN
  23. DITROPAN [Concomitant]
     Active Substance: OXYBUTYNIN CHLORIDE
  24. LORATADINE. [Concomitant]
     Active Substance: LORATADINE
  25. SENOKOT [Concomitant]
     Active Substance: SENNOSIDES
  26. LIORESAL [Suspect]
     Active Substance: BACLOFEN
     Dosage: 249.76 ?G, \DAY
     Route: 037
     Dates: end: 20190412
  27. LIORESAL [Suspect]
     Active Substance: BACLOFEN
     Dosage: 100 ?G, \DAY
     Dates: start: 20190412, end: 20190412
  28. NITRO-BID [Concomitant]
     Active Substance: NITROGLYCERIN
  29. FERROUS SULFATE. [Concomitant]
     Active Substance: FERROUS SULFATE

REACTIONS (3)
  - Unresponsive to stimuli [Recovered/Resolved]
  - Implant site erosion [Recovered/Resolved]
  - Infection [Recovered/Resolved]

NARRATIVE: CASE EVENT DATE: 20190411
